FAERS Safety Report 7386073-5 (Version None)
Quarter: 2011Q1

REPORT INFORMATION
  Report Type: 
  Country: None (occurrence: None)
  Receive Date: 20110331
  Receipt Date: 20110322
  Transmission Date: 20110831
  Serious: Yes (Other)
  Sender: FDA-Public Use
  Company Number: JP-JNJFOC-20110308458

PATIENT

DRUGS (5)
  1. DUROTEP MT [Suspect]
     Route: 062
  2. DUROTEP MT [Suspect]
     Indication: PAIN
     Route: 062
  3. OXYCODONE HCL [Concomitant]
     Route: 065
  4. MORPHINE HYDROCHLORIDE [Concomitant]
     Dosage: ON AS NEEDED BASIS
     Route: 065
  5. UNKNOWN MEDICATION [Concomitant]

REACTIONS (1)
  - DELIRIUM [None]
